FAERS Safety Report 15411240 (Version 1)
Quarter: 2018Q3

REPORT INFORMATION
  Report Type: Spontaneous
  Country: US (occurrence: US)
  Receive Date: 20180919
  Receipt Date: 20180919
  Transmission Date: 20181010
  Serious: Yes (Disabling)
  Sender: FDA-Public Use
  Company Number: None

PATIENT
  Age: 39 Year
  Sex: Female
  Weight: 78.75 kg

DRUGS (1)
  1. FASENRA [Suspect]
     Active Substance: BENRALIZUMAB
     Indication: ASTHMA
     Dates: start: 20180907

REACTIONS (5)
  - Pruritus generalised [None]
  - Rhinorrhoea [None]
  - Oropharyngeal pain [None]
  - Pulmonary congestion [None]
  - Headache [None]

NARRATIVE: CASE EVENT DATE: 20180918
